FAERS Safety Report 6043574-X (Version None)
Quarter: 2009Q1

REPORT INFORMATION
  Report Type: 
  Country: None (occurrence: None)
  Receive Date: 20090115
  Receipt Date: 20090105
  Transmission Date: 20090719
  Serious: Yes (Death)
  Sender: FDA-Public Use
  Company Number: 1000003462

PATIENT
  Age: 67 Year
  Sex: Female

DRUGS (5)
  1. TIAZAC [Suspect]
     Dosage: DOSAGE FORMS (DOSAGE FORMS)
  2. METOPROLOL TARTRATE [Suspect]
     Dosage: DOSAGE FORMS (DOSAGE FORMS)
  3. CLODRONATE DISODIUM [Concomitant]
  4. COZAAR [Concomitant]
  5. WARFARIN SODIUM [Concomitant]

REACTIONS (5)
  - CARDIOGENIC SHOCK [None]
  - DIZZINESS [None]
  - DRUG INTERACTION [None]
  - HEART RATE DECREASED [None]
  - NAUSEA [None]
